FAERS Safety Report 24539755 (Version 1)
Quarter: 2024Q4

REPORT INFORMATION
  Report Type: Spontaneous
  Country: CN (occurrence: CN)
  Receive Date: 20241023
  Receipt Date: 20241023
  Transmission Date: 20250114
  Serious: Yes (Hospitalization, Other)
  Sender: PFIZER
  Company Number: CN-PFIZER INC-PV202400135224

PATIENT
  Age: 42 Year
  Sex: Male
  Weight: 86 kg

DRUGS (2)
  1. CYTARABINE [Suspect]
     Active Substance: CYTARABINE
     Indication: Lymphoma
     Dosage: 8 G, 1X/DAY
     Route: 041
     Dates: start: 20240921, end: 20240921
  2. DEXTROSE [Concomitant]
     Active Substance: DEXTROSE MONOHYDRATE
     Indication: Lymphoma
     Dosage: 8 G, 1X/DAY
     Route: 041
     Dates: start: 20240921, end: 20240921

REACTIONS (2)
  - Myelosuppression [Recovering/Resolving]
  - Mucocutaneous haemorrhage [Recovering/Resolving]

NARRATIVE: CASE EVENT DATE: 20240921
